FAERS Safety Report 14859975 (Version 5)
Quarter: 2018Q3

REPORT INFORMATION
  Report Type: Spontaneous
  Country: US (occurrence: DE)
  Receive Date: 20180508
  Receipt Date: 20180705
  Transmission Date: 20181010
  Serious: Yes (Hospitalization, Other)
  Sender: FDA-Public Use
  Company Number: US-SUNOVION-2018SUN001823

PATIENT

DRUGS (3)
  1. SPIRIVA [Concomitant]
     Active Substance: TIOTROPIUM BROMIDE MONOHYDRATE
     Dosage: UNK
     Route: 065
  2. INDACATEROL AND GLYCOPYRROLATE [Suspect]
     Active Substance: GLYCOPYRROLATE\INDACATEROL MALEATE
     Indication: CHRONIC OBSTRUCTIVE PULMONARY DISEASE
     Dosage: 1 DF, QD
     Route: 055
     Dates: start: 201710, end: 20180420
  3. SPIRIVA [Concomitant]
     Active Substance: TIOTROPIUM BROMIDE MONOHYDRATE
     Indication: PRODUCT USED FOR UNKNOWN INDICATION
     Dosage: UNK

REACTIONS (34)
  - Gynaecological examination abnormal [Not Recovered/Not Resolved]
  - Musculoskeletal pain [Not Recovered/Not Resolved]
  - Fatigue [Recovering/Resolving]
  - Hypersensitivity [Not Recovered/Not Resolved]
  - Dyspnoea [Recovered/Resolved]
  - Cortisol decreased [Not Recovered/Not Resolved]
  - Dry mouth [Recovering/Resolving]
  - Dysphonia [Recovered/Resolved]
  - Headache [Recovering/Resolving]
  - Upper respiratory tract infection [Recovered/Resolved]
  - Arthralgia [Not Recovered/Not Resolved]
  - Adrenal disorder [Not Recovered/Not Resolved]
  - Rash [Not Recovered/Not Resolved]
  - Insomnia [Recovering/Resolving]
  - Muscle spasms [Recovered/Resolved]
  - Paraesthesia [Not Recovered/Not Resolved]
  - Nausea [Not Recovered/Not Resolved]
  - Hormone level abnormal [Not Recovered/Not Resolved]
  - Skin disorder [Not Recovered/Not Resolved]
  - Gastroenteritis [Not Recovered/Not Resolved]
  - Neuralgia [Not Recovered/Not Resolved]
  - Vomiting [Recovered/Resolved]
  - Pain in extremity [Not Recovered/Not Resolved]
  - Cholecystitis [Not Recovered/Not Resolved]
  - Dizziness [Recovering/Resolving]
  - Pruritus [Not Recovered/Not Resolved]
  - Oropharyngeal pain [Not Recovered/Not Resolved]
  - Dry skin [Not Recovered/Not Resolved]
  - Cough [Recovering/Resolving]
  - Bronchospasm paradoxical [Recovering/Resolving]
  - Cholelithiasis [Unknown]
  - Blood count abnormal [Not Recovered/Not Resolved]
  - Dyspepsia [Not Recovered/Not Resolved]
  - Myalgia [Not Recovered/Not Resolved]

NARRATIVE: CASE EVENT DATE: 2018
